FAERS Safety Report 5626120-1 (Version None)
Quarter: 2008Q1

REPORT INFORMATION
  Report Type: 
  Country: None (occurrence: None)
  Receive Date: 20080213
  Receipt Date: 20080213
  Transmission Date: 20080703
  Serious: Yes (Life-Threatening, Hospitalization)
  Sender: FDA-Public Use
  Company Number: None

PATIENT
  Age: 59 Year
  Sex: Male
  Weight: 112.0385 kg

DRUGS (1)
  1. CYMBALTA [Suspect]
     Indication: DIABETIC NEUROPATHY
     Dosage: 30 MG 1 TIME DAILY PO
     Route: 048
     Dates: start: 20071121, end: 20071125

REACTIONS (9)
  - CARDIAC FAILURE CONGESTIVE [None]
  - CONVULSION [None]
  - EJECTION FRACTION DECREASED [None]
  - ELECTROCARDIOGRAM CHANGE [None]
  - FATIGUE [None]
  - GASTROENTERITIS VIRAL [None]
  - HALLUCINATION [None]
  - HOT FLUSH [None]
  - MUSCLE INJURY [None]
